FAERS Safety Report 18778794 (Version 2)
Quarter: 2021Q1

REPORT INFORMATION
  Report Type: Spontaneous
  Country: US (occurrence: US)
  Receive Date: 20210124
  Receipt Date: 20210325
  Transmission Date: 20210419
  Serious: No
  Sender: FDA-Public Use
  Company Number: US-009507513-2101USA008424

PATIENT
  Age: 83 Year
  Sex: Male
  Weight: 99.77 kg

DRUGS (1)
  1. ALBUTEROL SULFATE. [Suspect]
     Active Substance: ALBUTEROL SULFATE
     Indication: CHRONIC OBSTRUCTIVE PULMONARY DISEASE
     Dosage: 1 OR 2 PUFFS BY INHALATION EVERY 6 HOURS FOR 30 DAYS
     Route: 055
     Dates: start: 20200406, end: 20210115

REACTIONS (5)
  - Poor quality device used [Unknown]
  - Incorrect dosage administered [Unknown]
  - Product use in unapproved indication [Unknown]
  - Product dose omission issue [Unknown]
  - Device malfunction [Unknown]

NARRATIVE: CASE EVENT DATE: 20210108
